FAERS Safety Report 7327898-1 (Version None)
Quarter: 2011Q1

REPORT INFORMATION
  Report Type: 
  Country: None (occurrence: None)
  Receive Date: 20110224
  Receipt Date: 20110224
  Transmission Date: 20110831
  Serious: Yes (Life-Threatening)
  Sender: FDA-Public Use
  Company Number: None

PATIENT
  Age: 62 Year
  Sex: Male
  Weight: 103.4201 kg

DRUGS (2)
  1. FINASTERIDE [Concomitant]
  2. BUPROPION 150 MG [Suspect]
     Indication: DEPRESSION
     Dosage: 150 MG ONCE A DAY PO
     Route: 048

REACTIONS (1)
  - PULMONARY EMBOLISM [None]
